FAERS Safety Report 12655778 (Version 3)
Quarter: 2016Q3

REPORT INFORMATION
  Report Type: Spontaneous
  Country: US (occurrence: US)
  Receive Date: 20160816
  Receipt Date: 20160930
  Transmission Date: 20161109
  Serious: Yes (Other)
  Sender: FDA-Public Use
  Company Number: US-PFIZER INC-2016383352

PATIENT
  Age: 70 Year
  Sex: Female

DRUGS (2)
  1. LETROZOLE. [Suspect]
     Active Substance: LETROZOLE
     Indication: BREAST CANCER
     Dosage: 2.5 MG, 1X/DAY
     Route: 048
     Dates: start: 20160807, end: 20160808
  2. IBRANCE [Suspect]
     Active Substance: PALBOCICLIB
     Dosage: 125 MG, UNK
     Dates: start: 20160728

REACTIONS (9)
  - Choking [Recovered/Resolved]
  - Fatigue [Unknown]
  - Plantar fascial fibromatosis [Unknown]
  - Dyspnoea [Recovered/Resolved]
  - Nausea [Unknown]
  - Oropharyngeal pain [Unknown]
  - Rash [Recovered/Resolved]
  - Upper respiratory tract infection [Unknown]
  - Feeling hot [Unknown]

NARRATIVE: CASE EVENT DATE: 20160808
